FAERS Safety Report 18401571 (Version 1)
Quarter: 2020Q4

REPORT INFORMATION
  Report Type: Spontaneous
  Country: CN (occurrence: CN)
  Receive Date: 20201019
  Receipt Date: 20201019
  Transmission Date: 20210114
  Serious: Yes (Other)
  Sender: FDA-Public Use
  Company Number: NVSC2020CN278742

PATIENT
  Age: 70 Year
  Sex: Female

DRUGS (2)
  1. EVEROLIMUS. [Suspect]
     Active Substance: EVEROLIMUS
     Indication: LUNG ADENOCARCINOMA
     Dosage: UNK, 3 LINES THERAPY
     Route: 065
  2. OSIMERTINIB. [Suspect]
     Active Substance: OSIMERTINIB
     Indication: LUNG ADENOCARCINOMA
     Dosage: UNK, 3 LINES THERAPY
     Route: 065

REACTIONS (4)
  - Lung adenocarcinoma [Unknown]
  - Product use in unapproved indication [Unknown]
  - Mouth ulceration [Unknown]
  - Malignant neoplasm progression [Unknown]
